FAERS Safety Report 8718181 (Version 2)
Quarter: 2012Q4

REPORT INFORMATION
  Report Type: 
  Country: US (occurrence: US)
  Receive Date: 20120810
  Receipt Date: 20120918
  Transmission Date: 20130627
  Serious: Yes (Death, Hospitalization)
  Sender: FDA-Public Use
  Company Number: US-INCYTE CORPORATION-2012IN001458

PATIENT
  Age: 35 None
  Sex: Male
  Weight: 60.77 kg

DRUGS (23)
  1. JAKAFI [Suspect]
     Indication: MYELOFIBROSIS
     Dosage: 15 mg, bid
     Route: 048
     Dates: start: 20120312, end: 20120425
  2. ARANESP [Concomitant]
     Dosage: 200 mcg, q2weeks
     Dates: start: 20110726, end: 20120320
  3. NORMAL SALINE [Concomitant]
     Dosage: UNK
     Dates: start: 20120424, end: 20120427
  4. ALLOPURINOL [Concomitant]
     Dosage: 100 mg, 5 x daily
     Route: 048
     Dates: start: 20120110
  5. ANZEMET [Concomitant]
     Dosage: 100 mg, qd
     Route: 048
     Dates: start: 20110211
  6. BACTRIM DS [Concomitant]
     Indication: URINARY TRACT INFECTION
     Dosage: 1, bid
     Route: 048
     Dates: start: 20110913
  7. CIPROFLOXACIN [Concomitant]
     Dosage: 500 mg, bid
     Route: 048
     Dates: start: 20101208
  8. DILAUDID [Concomitant]
     Indication: BREAKTHROUGH PAIN
     Dosage: Take one every 4-6 hours
  9. FENTANYL [Concomitant]
     Dosage: 12 mcg, Hr (apply one q 3 days)
     Route: 062
     Dates: start: 20111116
  10. FENTANYL [Concomitant]
     Dosage: 12 mcg, Hr (apply one q 3 days with the 12 mg patch)
     Route: 062
     Dates: start: 20111116
  11. HYDREA [Concomitant]
     Dosage: 2 in am and 3 in pm
     Route: 048
     Dates: start: 20120221
  12. HYDROCODONE W/APAP [Concomitant]
     Dosage: 1 tab q6h, prn
     Route: 048
     Dates: start: 20120207
  13. HYDROXYUREA [Concomitant]
     Dosage: 500 mg, bid
     Route: 048
     Dates: start: 20101208
  14. IMODIUM [Concomitant]
     Indication: DIARRHOEA
  15. LASIX [Concomitant]
     Dosage: 20 mg, qd
     Route: 048
  16. LEVAQUIN [Concomitant]
     Dosage: 250 mg, qd for 5 days
     Route: 048
     Dates: start: 20110913
  17. LORTAB [Concomitant]
     Indication: PAIN
     Dosage: 1 tab q4-6h prn
     Route: 048
     Dates: start: 20120417
  18. PRILOSEC [Concomitant]
     Dosage: 40 mg, qd
     Route: 048
     Dates: start: 20111004
  19. PROMETHAZINE [Concomitant]
     Indication: NAUSEA
     Dosage: 25 mg, q6-8h prn
     Route: 048
     Dates: start: 20120403
  20. QUESTRAN [Concomitant]
     Dosage: 2 g, bid (q12h) before meals; take other meds } 1h before or } 4-6 h after Questran
     Route: 048
     Dates: start: 20120320
  21. RESTORIL [Concomitant]
     Indication: SLEEP DISORDER
     Dosage: 15 mg hs, prn
     Route: 048
     Dates: start: 20120228
  22. ZANTAC [Concomitant]
     Indication: GASTROOESOPHAGEAL REFLUX DISEASE
     Dosage: 150 mg, bid, prn
     Route: 048
     Dates: start: 20110314
  23. ZITHROMAX Z-PACK [Concomitant]
     Dosage: Take as directed

REACTIONS (10)
  - Death [Fatal]
  - Oedema peripheral [Unknown]
  - Skin lesion [Unknown]
  - Nephrolithiasis [None]
  - Blood glucose increased [None]
  - Blood urea increased [None]
  - Blood creatinine increased [None]
  - Alanine aminotransferase increased [None]
  - Blood alkaline phosphatase increased [None]
  - Treatment noncompliance [None]
